FAERS Safety Report 6411829-2 (Version None)
Quarter: 2009Q4

REPORT INFORMATION
  Report Type: 
  Country: None (occurrence: None)
  Receive Date: 20091023
  Receipt Date: 20091013
  Transmission Date: 20100525
  Serious: Yes (Other)
  Sender: FDA-Public Use
  Company Number: US-JNJFOC-20080305279

PATIENT

DRUGS (1)
  1. REMICADE [Suspect]
     Indication: DRUG USE FOR UNKNOWN INDICATION
     Dosage: NO DRUG GIVEN
     Route: 042

REACTIONS (1)
  - MYELODYSPLASTIC SYNDROME [None]
